FAERS Safety Report 25097693 (Version 1)
Quarter: 2025Q1

REPORT INFORMATION
  Report Type: Spontaneous
  Country: MX (occurrence: MX)
  Receive Date: 20250320
  Receipt Date: 20250320
  Transmission Date: 20250409
  Serious: Yes (Other)
  Sender: NOVO NORDISK
  Company Number: MX-NOVOPROD-1388688

PATIENT
  Age: 66 Year
  Sex: Female
  Weight: 82 kg

DRUGS (1)
  1. SAXENDA [Suspect]
     Active Substance: LIRAGLUTIDE
     Indication: Weight control
     Dates: start: 2024

REACTIONS (8)
  - Blood glucose decreased [Recovered/Resolved]
  - Syncope [Recovered/Resolved]
  - Vision blurred [Recovered/Resolved]
  - Malaise [Recovered/Resolved]
  - Blood glucose decreased [Recovered/Resolved]
  - Dyspepsia [Unknown]
  - Weight increased [Unknown]
  - Drug ineffective [Unknown]

NARRATIVE: CASE EVENT DATE: 20240101
